FAERS Safety Report 5803201-0 (Version None)
Quarter: 2008Q3

REPORT INFORMATION
  Report Type: 
  Country: None (occurrence: None)
  Receive Date: 20080708
  Receipt Date: 20080704
  Transmission Date: 20090109
  Serious: Yes (Other)
  Sender: FDA-Public Use
  Company Number: DE-BRISTOL-MYERS SQUIBB COMPANY-14157952

PATIENT
  Sex: Female

DRUGS (1)
  1. CAPTOPRIL [Suspect]

REACTIONS (1)
  - ANGIOEDEMA [None]
